FAERS Safety Report 15278825 (Version 1)
Quarter: 2018Q4

REPORT INFORMATION
  Report Type: Report from Study
  Country: ES (occurrence: ES)
  Receive Date: 20180815
  Receipt Date: 20180815
  Transmission Date: 20190204
  Serious: Yes (Other)
  Sender: FDA-Public Use
  Company Number: ES-TEVA-2018-ES-940725

PATIENT
  Age: 10 Year
  Sex: Female

DRUGS (3)
  1. ETOPOSIDO (518A) [Suspect]
     Active Substance: ETOPOSIDE
     Indication: NON-HODGKIN^S LYMPHOMA
     Dosage: 100 MG/M2 DAILY; 1 TO 5 DAYS
     Route: 042
     Dates: start: 20171114, end: 20171118
  2. NELARABINA (8095A) [Suspect]
     Active Substance: NELARABINE
     Indication: NON-HODGKIN^S LYMPHOMA
     Dosage: 650 MG/M2 DAILY; DAYS 7 TO 11
     Route: 042
     Dates: start: 20171120, end: 20171124
  3. CICLOFOSFAMIDA (120A) [Suspect]
     Active Substance: CYCLOPHOSPHAMIDE
     Indication: NON-HODGKIN^S LYMPHOMA
     Dosage: 440 MG/M2 DAILY; 1 TO 5 DAYS
     Route: 042
     Dates: start: 20171114, end: 20171118

REACTIONS (1)
  - Hepatitis [Recovered/Resolved]

NARRATIVE: CASE EVENT DATE: 20171120
